FAERS Safety Report 8989930 (Version 1)
Quarter: 2012Q4

REPORT INFORMATION
  Report Type: 
  Country: US (occurrence: US)
  Receive Date: 20121228
  Receipt Date: 20121228
  Transmission Date: 20130627
  Serious: Yes (Death)
  Sender: FDA-Public Use
  Company Number: US-GLAXOSMITHKLINE-A1001079A

PATIENT
  Age: 61 Year
  Sex: Male

DRUGS (11)
  1. PROMACTA [Suspect]
     Indication: AUTOIMMUNE THROMBOCYTOPENIA
     Dosage: 50MG Per day
     Route: 048
     Dates: start: 20121101, end: 20121123
  2. FINASTERIDE [Concomitant]
  3. FOLIC ACID [Concomitant]
  4. FUROSEMIDE [Concomitant]
  5. LORAZEPAM [Concomitant]
  6. MORPHINE [Concomitant]
     Route: 048
  7. MULTIVITAMIN [Concomitant]
     Route: 048
  8. OMEPRAZOLE [Concomitant]
  9. KCL [Concomitant]
     Route: 048
  10. SPIRONOLACTONE [Concomitant]
  11. TAMSULOSIN [Concomitant]

REACTIONS (3)
  - Death [Fatal]
  - Dyspnoea [Unknown]
  - Diarrhoea [Unknown]
